FAERS Safety Report 5993774-X (Version None)
Quarter: 2008Q4

REPORT INFORMATION
  Report Type: 
  Country: None (occurrence: None)
  Receive Date: 20081212
  Receipt Date: 20081204
  Transmission Date: 20090506
  Serious: Yes (Hospitalization)
  Sender: FDA-Public Use
  Company Number: AU-ELI_LILLY_AND_COMPANY-AU200812001401

PATIENT
  Sex: Male

DRUGS (3)
  1. GEMZAR [Suspect]
     Indication: HODGKIN'S DISEASE
     Dosage: UNK,
     Route: 065
     Dates: start: 20080601
  2. VINORELBINE [Concomitant]
     Indication: HODGKIN'S DISEASE
     Dosage: 25 MG/M2, UNKNOWN
     Route: 065
     Dates: start: 20080601
  3. DEXAMETHASONE [Concomitant]
     Dosage: UNK, UNKNOWN
     Route: 065

REACTIONS (1)
  - PNEUMOCYSTIS JIROVECI PNEUMONIA [None]
